FAERS Safety Report 18414255 (Version 1)
Quarter: 2020Q4

REPORT INFORMATION
  Report Type: Spontaneous
  Country: US (occurrence: US)
  Receive Date: 20201022
  Receipt Date: 20201022
  Transmission Date: 20210114
  Serious: No
  Sender: FDA-Public Use
  Company Number: US-JNJFOC-20201003307

PATIENT
  Age: 74 Year
  Sex: Female
  Weight: 79.45 kg

DRUGS (1)
  1. TYLENOL 8 HR ARTHRITIS PAIN [Suspect]
     Active Substance: ACETAMINOPHEN
     Indication: ARTHRITIS
     Dosage: 2 TABLET ON 23-SEP-2020 AND TOOK AGAIN ON THE 25-SEP-2020
     Route: 048
     Dates: start: 20200923

REACTIONS (2)
  - Gastric disorder [Recovered/Resolved]
  - Inappropriate schedule of product administration [Unknown]

NARRATIVE: CASE EVENT DATE: 20200923
